FAERS Safety Report 8243541-1 (Version None)
Quarter: 2012Q1

REPORT INFORMATION
  Report Type: 
  Country: None (occurrence: None)
  Receive Date: 20120329
  Receipt Date: 20120323
  Transmission Date: 20120608
  Serious: Yes (Hospitalization, Other)
  Sender: FDA-Public Use
  Company Number: PHHY2011CA50733

PATIENT
  Sex: Female

DRUGS (3)
  1. SYNTHROID [Concomitant]
     Dosage: UNK UKN, UNK
  2. ZOLEDRONOC ACID [Suspect]
     Indication: OSTEOPOROSIS
     Dosage: 5 MG, UNK
     Route: 042
     Dates: start: 20110606
  3. METOPROLOL SUCCINATE [Concomitant]
     Dosage: UNK UKN, UNK

REACTIONS (9)
  - NAUSEA [None]
  - BONE PAIN [None]
  - DYSPNOEA [None]
  - MALAISE [None]
  - PYREXIA [None]
  - ASTHENIA [None]
  - GAIT DISTURBANCE [None]
  - CHILLS [None]
  - FATIGUE [None]
